FAERS Safety Report 10252279 (Version 1)
Quarter: 2014Q2

REPORT INFORMATION
  Report Type: Spontaneous
  Country: US (occurrence: US)
  Receive Date: 20140623
  Receipt Date: 20140623
  Transmission Date: 20141212
  Serious: No
  Sender: FDA-Public Use
  Company Number: US-PFIZER INC-2014166456

PATIENT
  Age: 87 Year
  Sex: Male

DRUGS (2)
  1. CELEBREX [Suspect]
     Indication: ARTHRALGIA
     Dosage: UNK
  2. ADVIL [Suspect]
     Indication: MUSCULOSKELETAL PAIN
     Dosage: UNK

REACTIONS (5)
  - Drug ineffective [Unknown]
  - Joint injury [Unknown]
  - Musculoskeletal pain [Unknown]
  - Haemoglobin decreased [Unknown]
  - Fatigue [Unknown]
